FAERS Safety Report 4819802-2 (Version None)
Quarter: 2005Q4

REPORT INFORMATION
  Report Type: 
  Country: None (occurrence: None)
  Receive Date: 20051102
  Receipt Date: 20051019
  Transmission Date: 20060501
  Serious: No
  Sender: FDA-Public Use
  Company Number: RS005563-AUS

PATIENT
  Age: 73 Year
  Sex: Female

DRUGS (4)
  1. RABEPRAZOLE SODIUM [Suspect]
     Indication: GASTROOESOPHAGEAL REFLUX DISEASE
     Dosage: 40 MG, ORAL
     Route: 048
     Dates: start: 20050916, end: 20050927
  2. HYDIENE (DYAZIDE) [Concomitant]
  3. SPIRIVA [Concomitant]
  4. SYMBICORT (SYMBICORT DRACO) [Concomitant]

REACTIONS (3)
  - NEPHRITIS [None]
  - RASH [None]
  - RENAL IMPAIRMENT [None]
